FAERS Safety Report 6425430-8 (Version None)
Quarter: 2009Q4

REPORT INFORMATION
  Report Type: 
  Country: None (occurrence: None)
  Receive Date: 20091029
  Receipt Date: 20091014
  Transmission Date: 20100525
  Serious: Yes (Other)
  Sender: FDA-Public Use
  Company Number: CIP08002864

PATIENT
  Age: 54 Year
  Sex: Female

DRUGS (4)
  1. ACTONEL [Suspect]
     Indication: OSTEOPENIA
     Dosage: ORAL
     Route: 048
  2. ESTRADIOL [Suspect]
     Indication: MENOPAUSAL SYMPTOMS
     Dosage: ORAL
     Route: 048
  3. ESTRADIOL [Suspect]
     Indication: OSTEOPENIA
     Dosage: ORAL
     Route: 048
  4. CALCIUM +D3 (CALCIUM, COLECALCIFEROL) [Concomitant]

REACTIONS (6)
  - BONE FORMATION DECREASED [None]
  - HIP FRACTURE [None]
  - IMPAIRED HEALING [None]
  - PATHOLOGICAL FRACTURE [None]
  - PELVIC FRACTURE [None]
  - VITAMIN D DECREASED [None]
